FAERS Safety Report 20023505 (Version 1)
Quarter: 2021Q4

REPORT INFORMATION
  Report Type: Spontaneous
  Country: CN (occurrence: CN)
  Receive Date: 20211102
  Receipt Date: 20211102
  Transmission Date: 20220303
  Serious: Yes (Other)
  Sender: FDA-Public Use
  Company Number: CN-BAXTER-2021BAX034363

PATIENT
  Age: 72 Year
  Sex: Female
  Weight: 60 kg

DRUGS (6)
  1. CYCLOPHOSPHAMIDE [Suspect]
     Active Substance: CYCLOPHOSPHAMIDE
     Indication: Diffuse large B-cell lymphoma
     Dosage: CYCLOPHOSPHAMIDE 1 G + 0.9% SODIUM CHLORIDE 100 ML
     Route: 041
     Dates: start: 20211011, end: 20211011
  2. SODIUM CHLORIDE [Suspect]
     Active Substance: SODIUM CHLORIDE
     Indication: Medication dilution
     Dosage: CYCLOPHOSPHAMIDE 1 G + 0.9% SODIUM CHLORIDE 100 ML
     Route: 041
     Dates: start: 20211011, end: 20211011
  3. SODIUM CHLORIDE [Suspect]
     Active Substance: SODIUM CHLORIDE
     Dosage: VINDESINE SULFATE 3 MG + 0.9% SODIUM CHLORIDE 500 ML
     Route: 041
     Dates: start: 20211011, end: 20211011
  4. SODIUM CHLORIDE [Suspect]
     Active Substance: SODIUM CHLORIDE
     Dosage: EPIRUBICIN HYDROCHLORIDE 60 MG + 0.9% SODIUM CHLORIDE 100 ML
     Route: 041
     Dates: start: 20211011, end: 20211011
  5. EPIRUBICIN HYDROCHLORIDE [Suspect]
     Active Substance: EPIRUBICIN HYDROCHLORIDE
     Indication: Diffuse large B-cell lymphoma
     Dosage: EPIRUBICIN HYDROCHLORIDE 60 MG + 0.9% SODIUM CHLORIDE 100 ML
     Route: 041
     Dates: start: 20211011, end: 20211011
  6. VINDESINE SULFATE [Suspect]
     Active Substance: VINDESINE SULFATE
     Indication: Diffuse large B-cell lymphoma
     Dosage: VINDESINE SULFATE 3 MG + 0.9% SODIUM CHLORIDE 500 ML
     Route: 041
     Dates: start: 20211011, end: 20211011

REACTIONS (1)
  - Myelosuppression [Recovering/Resolving]

NARRATIVE: CASE EVENT DATE: 20211018
